FAERS Safety Report 12887179 (Version 2)
Quarter: 2017Q4

REPORT INFORMATION
  Report Type: Spontaneous
  Country: US (occurrence: US)
  Receive Date: 20161026
  Receipt Date: 20171023
  Transmission Date: 20180320
  Serious: No
  Sender: FDA-Public Use
  Company Number: US-ABBVIE-16P-163-1737824-00

PATIENT
  Sex: Female

DRUGS (3)
  1. INVEGA [Suspect]
     Active Substance: PALIPERIDONE
     Indication: PRODUCT USED FOR UNKNOWN INDICATION
     Route: 065
  2. AYGESTIN [Suspect]
     Active Substance: NORETHINDRONE ACETATE
     Indication: MENOPAUSAL SYMPTOMS PROPHYLAXIS
     Route: 065
  3. LUPRON [Suspect]
     Active Substance: LEUPROLIDE ACETATE
     Indication: ENDOMETRIOSIS
     Route: 050

REACTIONS (6)
  - Haemangioma of liver [Unknown]
  - Hormone level abnormal [Unknown]
  - Bipolar disorder [Unknown]
  - Hepatic adenoma [Unknown]
  - Adverse drug reaction [Unknown]
  - Dysmenorrhoea [Unknown]

NARRATIVE: CASE EVENT DATE: 2016
